FAERS Safety Report 6503076-0 (Version None)
Quarter: 2009Q4

REPORT INFORMATION
  Report Type: 
  Country: None (occurrence: None)
  Receive Date: 20091217
  Receipt Date: 20091207
  Transmission Date: 20100525
  Serious: Yes (Death)
  Sender: FDA-Public Use
  Company Number: JP-ROCHE-674548

PATIENT
  Age: 60 Year
  Sex: Male

DRUGS (1)
  1. TAMIFLU [Suspect]
     Dosage: DOSE, FREQUENCY UNSPECIFIED.
     Route: 048
     Dates: start: 20091130, end: 20091204

REACTIONS (1)
  - PNEUMONIA [None]
